FAERS Safety Report 15262966 (Version 2)
Quarter: 2018Q3

REPORT INFORMATION
  Report Type: Spontaneous
  Country: US (occurrence: US)
  Receive Date: 20180810
  Receipt Date: 20180816
  Transmission Date: 20181010
  Serious: No
  Sender: FDA-Public Use
  Company Number: US-UNITED THERAPEUTICS-UNT-2018-011978

PATIENT
  Age: 59 Year
  Sex: Female
  Weight: 92.52 kg

DRUGS (3)
  1. OPSUMIT [Concomitant]
     Active Substance: MACITENTAN
     Indication: PRODUCT USED FOR UNKNOWN INDICATION
     Route: 065
  2. REMODULIN [Suspect]
     Active Substance: TREPROSTINIL
     Indication: PULMONARY HYPERTENSION
     Dosage: 0.0225 ?G/KG, CONTINUING
     Route: 058
     Dates: start: 20180706
  3. REMODULIN [Suspect]
     Active Substance: TREPROSTINIL
     Indication: PULMONARY ARTERIAL HYPERTENSION

REACTIONS (6)
  - Infusion site pruritus [Unknown]
  - Infusion site pain [Unknown]
  - Sneezing [Unknown]
  - Diarrhoea [Recovering/Resolving]
  - Infusion site erythema [Unknown]
  - Ear congestion [Unknown]

NARRATIVE: CASE EVENT DATE: 2018
